FAERS Safety Report 6634355-4 (Version None)
Quarter: 2010Q1

REPORT INFORMATION
  Report Type: 
  Country: None (occurrence: None)
  Receive Date: 20100315
  Receipt Date: 20100224
  Transmission Date: 20100710
  Serious: Yes (Disabling)
  Sender: FDA-Public Use
  Company Number: JP-SANOFI-AVENTIS-2010SA003234

PATIENT
  Age: 85 Year
  Sex: Male
  Weight: 66 kg

DRUGS (14)
  1. PLAVIX [Suspect]
     Indication: ANGINA UNSTABLE
     Route: 048
     Dates: start: 20090609, end: 20090609
  2. PLAVIX [Suspect]
     Route: 048
     Dates: start: 20090610
  3. ASPIRIN [Concomitant]
     Indication: ANGINA UNSTABLE
     Route: 048
  4. HEPARIN [Concomitant]
     Indication: ANGINA UNSTABLE
     Dosage: DOSE:5000 UNIT(S)
     Route: 042
     Dates: start: 20090610
  5. HEPARIN [Concomitant]
     Dosage: DOSE:5000 UNIT(S)
     Route: 042
     Dates: start: 20090617
  6. PITAVASTATIN CALCIUM [Concomitant]
     Route: 048
     Dates: start: 20090613
  7. DIOVAN [Concomitant]
     Route: 048
     Dates: start: 20090613
  8. TAKEPRON [Concomitant]
     Route: 048
     Dates: start: 20090613
  9. BENZALIN [Concomitant]
     Indication: PROPHYLAXIS
     Route: 048
     Dates: start: 20090606
  10. CRAVIT [Concomitant]
     Indication: PROPHYLAXIS
     Route: 048
     Dates: start: 20090604, end: 20090606
  11. CRAVIT [Concomitant]
     Route: 048
     Dates: start: 20090609, end: 20090611
  12. CRAVIT [Concomitant]
     Route: 048
     Dates: start: 20090616, end: 20090618
  13. PLETAL [Concomitant]
     Route: 048
     Dates: start: 20090608, end: 20090610
  14. NITOROL [Concomitant]
     Route: 048
     Dates: start: 20090613, end: 20090619

REACTIONS (1)
  - ATRIOVENTRICULAR BLOCK [None]
